FAERS Safety Report 8796939 (Version 2)
Quarter: 2013Q2

REPORT INFORMATION
  Report Type: Spontaneous
  Country: JP (occurrence: JP)
  Receive Date: 20120920
  Receipt Date: 20130530
  Transmission Date: 20140414
  Serious: Yes (Hospitalization)
  Sender: FDA-Public Use
  Company Number: PHHY2012JP069417

PATIENT
  Age: 72 Year
  Sex: Male
  Weight: 40 kg

DRUGS (4)
  1. GLIVEC [Suspect]
     Indication: GASTROINTESTINAL STROMAL TUMOUR
     Dosage: 400 MG, DAILY
     Route: 048
     Dates: start: 20120709, end: 20120807
  2. FAMOTIDINE [Concomitant]
     Dosage: 40 MG, UNK
     Route: 048
  3. MAGMITT [Concomitant]
     Dosage: 1650 MG, UNK
     Route: 048
  4. NOVAMIN [Concomitant]
     Indication: PROPHYLAXIS OF NAUSEA AND VOMITING
     Dosage: 10 G, UNK
     Route: 048
     Dates: start: 20120731, end: 20120808

REACTIONS (7)
  - Erythema multiforme [Recovering/Resolving]
  - Anal erosion [Unknown]
  - Oral mucosa erosion [Unknown]
  - Ulcer [Unknown]
  - Scrotal ulcer [Unknown]
  - Papule [Unknown]
  - Rash [Recovering/Resolving]
